FAERS Safety Report 8936083 (Version 2)
Quarter: 2013Q1

REPORT INFORMATION
  Report Type: Spontaneous
  Country: US (occurrence: None)
  Receive Date: 20121121
  Receipt Date: 20130123
  Transmission Date: 20140127
  Serious: Yes (Hospitalization)
  Sender: FDA-Public Use
  Company Number: JPI-P-026316

PATIENT
  Age: 52 Year
  Sex: Female
  Weight: 84.82 kg

DRUGS (3)
  1. XYREM [Suspect]
     Indication: NARCOLEPSY
     Route: 048
     Dates: start: 20120618
  2. XYREM [Suspect]
     Indication: SOMNOLENCE
     Route: 048
     Dates: start: 20120618
  3. MODAFINIL [Concomitant]

REACTIONS (4)
  - Diverticulitis [None]
  - Nausea [None]
  - Vomiting [None]
  - Pain [None]
